FAERS Safety Report 4598024-7 (Version None)
Quarter: 2005Q1

REPORT INFORMATION
  Report Type: 
  Country: None (occurrence: None)
  Receive Date: 20050204
  Receipt Date: 20040601
  Transmission Date: 20050727
  Serious: Yes (Hospitalization)
  Sender: FDA-Public Use
  Company Number: PHEH2002US09380

PATIENT
  Age: 55 Year
  Sex: Male

DRUGS (2)
  1. CLOZARIL [Suspect]
     Indication: SCHIZOPHRENIA
     Dosage: 200 MG, ORAL
     Route: 048
     Dates: start: 19981207
  2. OLANZAPINE [Concomitant]

REACTIONS (7)
  - CHEST X-RAY ABNORMAL [None]
  - COUGH [None]
  - FATIGUE [None]
  - LEUKOPENIA [None]
  - PROSTATIC DISORDER [None]
  - PYREXIA [None]
  - VIRAL INFECTION [None]
